FAERS Safety Report 5900279-0 (Version None)
Quarter: 2008Q3

REPORT INFORMATION
  Report Type: 
  Country: None (occurrence: None)
  Receive Date: 20080926
  Receipt Date: 20080916
  Transmission Date: 20090109
  Serious: Yes (Other)
  Sender: FDA-Public Use
  Company Number: PHHY2008BR21622

PATIENT
  Age: 41 Year
  Sex: Male
  Weight: 79 kg

DRUGS (2)
  1. VOLTAREN [Suspect]
     Indication: POSTOPERATIVE CARE
     Dosage: 75 MG, Q12H
     Route: 048
     Dates: start: 20080911, end: 20080914
  2. ACETAMINOPHEN W/ CODEINE [Suspect]
     Indication: POSTOPERATIVE CARE
     Dosage: 1 DF, Q8H
     Route: 048
     Dates: start: 20080911, end: 20080914

REACTIONS (5)
  - DIZZINESS [None]
  - MALAISE [None]
  - NAUSEA [None]
  - PHOTOPHOBIA [None]
  - STOMACH DISCOMFORT [None]
